FAERS Safety Report 6134546-5 (Version None)
Quarter: 2009Q1

REPORT INFORMATION
  Report Type: 
  Country: None (occurrence: None)
  Receive Date: 20090327
  Receipt Date: 20090324
  Transmission Date: 20090719
  Serious: Yes (Other)
  Sender: FDA-Public Use
  Company Number: US-BRISTOL-MYERS SQUIBB COMPANY-14539985

PATIENT
  Age: 77 Year
  Sex: Female

DRUGS (3)
  1. PRAVACHOL [Suspect]
     Indication: HYPERCHOLESTEROLAEMIA
     Dosage: START:7-8YEARS AGO FOR ABOUT 6WEEKS
     Route: 048
  2. CRESTOR [Suspect]
  3. LOVASTATIN [Concomitant]

REACTIONS (1)
  - DETACHMENT OF RETINAL PIGMENT EPITHELIUM [None]
